FAERS Safety Report 8957051 (Version 1)
Quarter: 2012Q4

REPORT INFORMATION
  Report Type: Spontaneous
  Country: US (occurrence: None)
  Receive Date: 20121205
  Receipt Date: 20121205
  Transmission Date: 20130627
  Serious: Yes (Hospitalization)
  Sender: FDA-Public Use
  Company Number: None

PATIENT
  Age: 26 Year
  Sex: Female
  Weight: 91.17 kg

DRUGS (1)
  1. MIRENA IUD [Suspect]
     Indication: BIRTH CONTROL
     Dosage: one insertion once Intra-uterine
     Route: 015
     Dates: start: 20120917, end: 20121021

REACTIONS (3)
  - Device dislocation [None]
  - Device dislocation [None]
  - Back pain [None]
